FAERS Safety Report 6330048-1 (Version None)
Quarter: 2009Q3

REPORT INFORMATION
  Report Type: 
  Country: None (occurrence: None)
  Receive Date: 20090825
  Receipt Date: 20090817
  Transmission Date: 20100115
  Serious: Yes (Death, Hospitalization)
  Sender: FDA-Public Use
  Company Number: 2009AL002563

PATIENT
  Age: 60 Year
  Sex: Male

DRUGS (19)
  1. DIGOXIN [Suspect]
     Dosage: 0.125MG, DAILY, PO; 0.25MG, DAILY, PO
     Route: 048
  2. LIDOCAINE [Concomitant]
  3. DOBUTREX [Concomitant]
  4. PEPCID [Concomitant]
  5. ASPIRIN [Concomitant]
  6. MULTIPLE VITAMIN [Concomitant]
  7. ACCUPRIL [Concomitant]
  8. ISMO [Concomitant]
  9. LASIX [Concomitant]
  10. MICRO-K [Concomitant]
  11. CARDERONE [Concomitant]
  12. SODIUM BICARBONATE IN PLASTIC CONTAINER [Concomitant]
  13. CIPRO [Concomitant]
  14. QUINAPRIL [Concomitant]
  15. IMDUR [Concomitant]
  16. AMIODARONE HCL [Concomitant]
  17. GEMFIBROZIL [Concomitant]
  18. NPH INSULIN [Concomitant]
  19. HYDROCODONE [Concomitant]

REACTIONS (31)
  - ANAL FISSURE [None]
  - ANAL SPHINCTER HYPERTONIA [None]
  - BLOOD GLUCOSE INCREASED [None]
  - BLOOD URIC ACID INCREASED [None]
  - CALCULUS URETERIC [None]
  - CALCULUS URINARY [None]
  - CARDIAC FAILURE CONGESTIVE [None]
  - CARDIOMEGALY [None]
  - CARDIOMYOPATHY [None]
  - CHOLECYSTITIS ACUTE [None]
  - DYSPNOEA [None]
  - DYSPNOEA PAROXYSMAL NOCTURNAL [None]
  - ECONOMIC PROBLEM [None]
  - EJECTION FRACTION DECREASED [None]
  - GASTROINTESTINAL PAIN [None]
  - HAEMOGLOBIN DECREASED [None]
  - HYPERTENSION [None]
  - ILL-DEFINED DISORDER [None]
  - INJURY [None]
  - LEFT VENTRICULAR DYSFUNCTION [None]
  - LEUKOCYTOSIS [None]
  - MITRAL VALVE INCOMPETENCE [None]
  - PALPITATIONS [None]
  - PNEUMONIA [None]
  - RENAL FAILURE [None]
  - SURGERY [None]
  - URETERIC OBSTRUCTION [None]
  - URINARY RETENTION [None]
  - VENTRICULAR EXTRASYSTOLES [None]
  - VENTRICULAR HYPOKINESIA [None]
  - VENTRICULAR TACHYCARDIA [None]
